FAERS Safety Report 4703756-3 (Version None)
Quarter: 2005Q2

REPORT INFORMATION
  Report Type: 
  Country: None (occurrence: None)
  Receive Date: 20050628
  Receipt Date: 20050616
  Transmission Date: 20051028
  Serious: Yes (Other)
  Sender: FDA-Public Use
  Company Number: 2005086166

PATIENT
  Age: 63 Year
  Sex: Male

DRUGS (1)
  1. TIKOSYN [Suspect]
     Indication: ILL-DEFINED DISORDER

REACTIONS (1)
  - BENIGN PROSTATIC HYPERPLASIA [None]
